FAERS Safety Report 7213047-7 (Version None)
Quarter: 2011Q1

REPORT INFORMATION
  Report Type: 
  Country: None (occurrence: None)
  Receive Date: 20110106
  Receipt Date: 20101228
  Transmission Date: 20110831
  Serious: Yes (Hospitalization)
  Sender: FDA-Public Use
  Company Number: B0691137A

PATIENT
  Sex: Male

DRUGS (7)
  1. DEROXAT [Suspect]
     Indication: DEPRESSION
     Dosage: 1UNIT TWICE PER DAY
     Route: 048
     Dates: start: 20091029, end: 20091105
  2. MONOTILDIEM LP [Concomitant]
     Indication: HYPERTENSION
     Dosage: 300MG PER DAY
     Route: 065
  3. EQUANIL [Concomitant]
     Indication: ALCOHOL USE
     Dosage: 400MG PER DAY
     Route: 065
  4. VALSARTAN  AND HYDROCHLOROTHIAZIDE [Concomitant]
     Indication: HYPERTENSION
     Dosage: 160MG PER DAY
     Route: 065
  5. VITAMIN B COMPLEX CAP [Concomitant]
     Indication: ALCOHOL USE
     Route: 065
  6. PLAVIX [Concomitant]
     Indication: ARTERIAL DISORDER
     Dosage: 75MG PER DAY
     Route: 065
  7. AOTAL [Concomitant]
     Indication: ALCOHOL USE
     Route: 065

REACTIONS (14)
  - INFLAMMATION [None]
  - GRAND MAL CONVULSION [None]
  - HYPONATRAEMIA [None]
  - CHRONIC OBSTRUCTIVE PULMONARY DISEASE [None]
  - CONVULSION [None]
  - RALES [None]
  - INTERSTITIAL LUNG DISEASE [None]
  - DYSPNOEA [None]
  - HEPATIC ENCEPHALOPATHY [None]
  - EMPHYSEMA [None]
  - DEHYDRATION [None]
  - MOTOR DYSFUNCTION [None]
  - FALL [None]
  - LUNG DISORDER [None]
